FAERS Safety Report 14216285 (Version 2)
Quarter: 2017Q4

REPORT INFORMATION
  Report Type: Report from Study
  Country: IT (occurrence: IT)
  Receive Date: 20171122
  Receipt Date: 20171127
  Transmission Date: 20180321
  Serious: Yes (Other)
  Sender: FDA-Public Use
  Company Number: IT-PFIZER INC-2017496803

PATIENT

DRUGS (4)
  1. GEMCITABINE HYDROCHLORIDE. [Suspect]
     Active Substance: GEMCITABINE HYDROCHLORIDE
     Indication: SPINDLE CELL SARCOMA
  2. DOCETAXEL. [Suspect]
     Active Substance: DOCETAXEL
     Indication: SPINDLE CELL SARCOMA
  3. GEMCITABINE HYDROCHLORIDE. [Suspect]
     Active Substance: GEMCITABINE HYDROCHLORIDE
     Indication: OSTEOSARCOMA
     Dosage: 900 MG/M2, CYCLIC D 1, 8
  4. DOCETAXEL. [Suspect]
     Active Substance: DOCETAXEL
     Indication: OSTEOSARCOMA
     Dosage: 75 MG/M2, CYCLIC D 8, EVERY 21 DAYS

REACTIONS (1)
  - Capillary leak syndrome [Unknown]
